FAERS Safety Report 12659314 (Version 2)
Quarter: 2016Q4

REPORT INFORMATION
  Report Type: Spontaneous
  Country: US (occurrence: US)
  Receive Date: 20160817
  Receipt Date: 20161010
  Transmission Date: 20170207
  Serious: Yes (Other)
  Sender: FDA-Public Use
  Company Number: US-ASTELLAS-2016US011153

PATIENT
  Age: 92 Year
  Sex: Male

DRUGS (1)
  1. XTANDI [Suspect]
     Active Substance: ENZALUTAMIDE
     Indication: PROSTATE CANCER
     Dosage: 160 MG (4 X 40 MG), ONCE DAILY
     Route: 048
     Dates: start: 20160302

REACTIONS (11)
  - Body temperature increased [Unknown]
  - Calculus bladder [Unknown]
  - Vomiting [Unknown]
  - Blood urine present [Unknown]
  - Urinary retention [Not Recovered/Not Resolved]
  - Nephrolithiasis [Unknown]
  - Blood pressure decreased [Recovered/Resolved]
  - Head injury [Unknown]
  - Urinary tract infection [Unknown]
  - Diarrhoea [Unknown]
  - Dizziness [Unknown]

NARRATIVE: CASE EVENT DATE: 20160503
